FAERS Safety Report 10174617 (Version 1)
Quarter: 2014Q2

REPORT INFORMATION
  Report Type: Spontaneous
  Country: US (occurrence: US)
  Receive Date: 20140515
  Receipt Date: 20140515
  Transmission Date: 20141212
  Serious: Yes (Hospitalization)
  Sender: FDA-Public Use
  Company Number: US-GLAXOSMITHKLINE-A1072317A

PATIENT
  Age: 63 Year
  Sex: Male

DRUGS (8)
  1. ADVAIR [Suspect]
     Indication: ASTHMA
     Dosage: 1PUFF TWICE PER DAY
     Route: 055
  2. FLONASE [Concomitant]
  3. ZYRTEC [Concomitant]
  4. ALLOPURINOL [Concomitant]
  5. POTASSIUM CITRATE [Concomitant]
  6. ASPIRIN [Concomitant]
  7. EYE DROPS [Concomitant]
  8. PNEUMONIA VACCINE [Concomitant]

REACTIONS (6)
  - Pneumonia [Recovered/Resolved]
  - Hip arthroplasty [Unknown]
  - Asthma [Recovered/Resolved]
  - Glaucoma [Not Recovered/Not Resolved]
  - Arthritis [Not Recovered/Not Resolved]
  - Dyspnoea [Recovered/Resolved]
